FAERS Safety Report 6479095-X (Version None)
Quarter: 2009Q4

REPORT INFORMATION
  Report Type: 
  Country: None (occurrence: None)
  Receive Date: 20091207
  Receipt Date: 20090212
  Transmission Date: 20100525
  Serious: No
  Sender: FDA-Public Use
  Company Number: US-AMGEN-KDL333767

PATIENT
  Sex: Female

DRUGS (1)
  1. ENBREL [Suspect]
     Indication: RHEUMATOID ARTHRITIS
     Route: 058
     Dates: start: 20041101

REACTIONS (6)
  - ANGER [None]
  - DRUG INEFFECTIVE [None]
  - FOOT FRACTURE [None]
  - IMPAIRED HEALING [None]
  - INSOMNIA [None]
  - RED BLOOD CELL SEDIMENTATION RATE INCREASED [None]
